FAERS Safety Report 5370994-9 (Version None)
Quarter: 2007Q2

REPORT INFORMATION
  Report Type: 
  Country: None (occurrence: None)
  Receive Date: 20070626
  Receipt Date: 20070613
  Transmission Date: 20071010
  Serious: Yes (Hospitalization, Other)
  Sender: FDA-Public Use
  Company Number: US-ELI_LILLY_AND_COMPANY-US200706002977

PATIENT
  Age: 63 Year
  Sex: Female

DRUGS (2)
  1. FORTEO [Suspect]
     Indication: OSTEOPOROSIS
     Dosage: UNK, UNK
     Dates: start: 20070415, end: 20070501
  2. FORTEO [Suspect]
     Dosage: UNK, UNK
     Dates: start: 20070101

REACTIONS (8)
  - ACCIDENT [None]
  - ARTHRALGIA [None]
  - FALL [None]
  - FRACTURE [None]
  - HIP FRACTURE [None]
  - MONARTHRITIS [None]
  - PHARMACEUTICAL PRODUCT COMPLAINT [None]
  - PROCEDURAL PAIN [None]
